FAERS Safety Report 6767170-1 (Version None)
Quarter: 2010Q2

REPORT INFORMATION
  Report Type: 
  Country: None (occurrence: None)
  Receive Date: 20100614
  Receipt Date: 20100607
  Transmission Date: 20101027
  Serious: Yes (Hospitalization, Other)
  Sender: FDA-Public Use
  Company Number: US-ELI_LILLY_AND_COMPANY-US201006002414

PATIENT
  Sex: Female

DRUGS (12)
  1. HUMALOG [Suspect]
     Indication: DIABETES MELLITUS
     Dosage: UNK, AS NEEDED
  2. HUMALOG [Suspect]
     Dosage: 40 U, UNKNOWN
  3. HUMALOG [Suspect]
     Dosage: UNK, AS NEEDED
  4. HUMALOG [Suspect]
     Dosage: 40 U, UNKNOWN
  5. LACTULOSE [Concomitant]
     Indication: AMMONIA ABNORMAL
  6. LEVOTHYROXINE SODIUM [Concomitant]
     Indication: THYROID DISORDER
  7. LASIX [Concomitant]
     Indication: SWELLING
  8. OXYCODONE HYDROCHLORIDE [Concomitant]
     Indication: MUSCULOSKELETAL PAIN
  9. TRAZODONE [Concomitant]
     Indication: SLEEP DISORDER
     Dosage: 100 MG, UNKNOWN
  10. PHENERGAN [Concomitant]
     Indication: NAUSEA
  11. CITALOPRAM HYDROBROMIDE [Concomitant]
     Indication: DEPRESSION
     Dosage: 40 MG, UNKNOWN
  12. OMEPRAZOLE [Concomitant]
     Indication: GASTRIC HAEMORRHAGE
     Dosage: 20 MG, UNKNOWN

REACTIONS (4)
  - BLOOD GLUCOSE INCREASED [None]
  - HAEMATEMESIS [None]
  - MEMORY IMPAIRMENT [None]
  - RENAL FAILURE [None]
